FAERS Safety Report 9026558 (Version 1)
Quarter: 2012Q4

REPORT INFORMATION
  Report Type: Spontaneous
  Country: US (occurrence: None)
  Receive Date: 20121218
  Receipt Date: 20121218
  Transmission Date: 20130627
  Serious: Yes (Other)
  Sender: FDA-Public Use
  Company Number: None

PATIENT
  Age: 79 Year
  Sex: Female

DRUGS (1)
  1. EYLEA [Suspect]
     Indication: WET  MACULAR DEGENERATION
     Dosage: 2mg   every 6-8  weeks   Ophthalmic
     Route: 047
     Dates: start: 20120326, end: 20120720

REACTIONS (2)
  - Vitreous disorder [None]
  - Inflammation [None]
